FAERS Safety Report 5321214-2 (Version None)
Quarter: 2007Q2

REPORT INFORMATION
  Report Type: 
  Country: None (occurrence: None)
  Receive Date: 20070214
  Receipt Date: 20061010
  Transmission Date: 20071010
  Serious: Yes (Other)
  Sender: FDA-Public Use
  Company Number: 146625USA

PATIENT
  Age: 46 Year
  Sex: Female

DRUGS (2)
  1. PROPOFOL [Suspect]
     Indication: KNEE OPERATION
     Dates: start: 20060619, end: 20060619
  2. PROPOFOL [Suspect]
     Indication: MENISCUS LESION
     Dates: start: 20060619, end: 20060619

REACTIONS (17)
  - ABNORMAL DREAMS [None]
  - DIARRHOEA [None]
  - DYSKINESIA [None]
  - HALLUCINATION [None]
  - HEADACHE [None]
  - HEPATIC ENZYME INCREASED [None]
  - HYPOAESTHESIA [None]
  - LEUKOCYTOSIS [None]
  - LIP SWELLING [None]
  - LOCAL SWELLING [None]
  - MUSCLE RIGIDITY [None]
  - NEUROPATHY [None]
  - PARAESTHESIA [None]
  - PAROTID GLAND ENLARGEMENT [None]
  - SALIVARY GLAND ENLARGEMENT [None]
  - THROAT TIGHTNESS [None]
  - TINNITUS [None]
